FAERS Safety Report 5578036-7 (Version None)
Quarter: 2007Q4

REPORT INFORMATION
  Report Type: 
  Country: None (occurrence: None)
  Receive Date: 20071231
  Receipt Date: 20071228
  Transmission Date: 20080405
  Serious: Yes (Death, Life-Threatening, Other)
  Sender: FDA-Public Use
  Company Number: US-BRISTOL-MYERS SQUIBB COMPANY-14019798

PATIENT
  Sex: Male

DRUGS (4)
  1. CISPLATIN [Suspect]
     Indication: SQUAMOUS CELL CARCINOMA
     Route: 042
  2. BLEOMYCIN [Suspect]
     Indication: SQUAMOUS CELL CARCINOMA
     Dosage: DAYS 2 THROUGH 6
     Route: 042
  3. METHOTREXATE [Suspect]
     Indication: SQUAMOUS CELL CARCINOMA
     Dosage: ON DAYS 2,15 AND 22
     Route: 042
  4. LEUCOVORIN [Concomitant]
     Route: 048

REACTIONS (4)
  - LARGE INTESTINE PERFORATION [None]
  - MULTI-ORGAN FAILURE [None]
  - NEUTROPENIC SEPSIS [None]
  - RENAL FAILURE ACUTE [None]
